FAERS Safety Report 6048675-8 (Version None)
Quarter: 2009Q1

REPORT INFORMATION
  Report Type: 
  Country: None (occurrence: None)
  Receive Date: 20090123
  Receipt Date: 20090115
  Transmission Date: 20090719
  Serious: Yes (Other)
  Sender: FDA-Public Use
  Company Number: CA-ASTRAZENECA-2009UW01545

PATIENT
  Age: 37 Year
  Sex: Male
  Weight: 80 kg

DRUGS (20)
  1. MERREM [Suspect]
     Route: 042
  2. CIPROFLOXACIN [Suspect]
     Route: 048
  3. ACETAMINOPHEN [Concomitant]
  4. CALCIUM [Concomitant]
  5. DIMENHYDRINATE [Concomitant]
  6. FERROUS GLUCONATE [Concomitant]
  7. HEPARIN [Concomitant]
  8. IPRATROPIUM BROMIDE [Concomitant]
  9. LACTULOSE [Concomitant]
  10. LEVETIRACETAM [Concomitant]
  11. LORAZEPAM [Concomitant]
  12. MAGNESIUM SULFATE [Concomitant]
  13. MORPHINE [Concomitant]
  14. MULTI-VITAMIN [Concomitant]
  15. PHENYTOIN [Concomitant]
  16. POLYTOPIC [Concomitant]
  17. POTASSIUM CHLORIDE [Concomitant]
  18. RANITIDINE [Concomitant]
  19. ALBUTEROL SULFATE [Concomitant]
  20. ZOPICLONE [Concomitant]

REACTIONS (3)
  - CONVULSION [None]
  - DEPRESSED LEVEL OF CONSCIOUSNESS [None]
  - GRAND MAL CONVULSION [None]
